FAERS Safety Report 17651209 (Version 1)
Quarter: 2020Q2

REPORT INFORMATION
  Report Type: Other
  Country: BG (occurrence: BG)
  Receive Date: 20200408
  Receipt Date: 20200408
  Transmission Date: 20200713
  Serious: Yes (Other)
  Sender: FDA-Public Use
  Company Number: BG-CELLTRION INC.-2020BG021261

PATIENT

DRUGS (5)
  1. XGEVA [Suspect]
     Active Substance: DENOSUMAB
     Indication: METASTASES TO BONE
     Dosage: 120 MILLIGRAM, Q4WK
     Route: 065
     Dates: start: 201602
  2. TRASTUZUMAB (UNKNOWN) [Suspect]
     Active Substance: TRASTUZUMAB
     Indication: MUSCULOSKELETAL DISORDER
     Dosage: UNK
     Route: 065
     Dates: start: 201602
  3. XGEVA [Suspect]
     Active Substance: DENOSUMAB
     Indication: MUSCULOSKELETAL DISORDER
     Dosage: UNK
  4. LAPATINIB [Concomitant]
     Active Substance: LAPATINIB
     Indication: MUSCULOSKELETAL DISORDER
     Dosage: UNK
     Route: 065
  5. KADCYLA [Concomitant]
     Active Substance: ADO-TRASTUZUMAB EMTANSINE

REACTIONS (2)
  - Product use in unapproved indication [Unknown]
  - Breast cancer metastatic [Unknown]

NARRATIVE: CASE EVENT DATE: 201902
